FAERS Safety Report 21053011 (Version 1)
Quarter: 2022Q3

REPORT INFORMATION
  Report Type: Spontaneous
  Country: IL (occurrence: None)
  Receive Date: 20220707
  Receipt Date: 20220707
  Transmission Date: 20221027
  Serious: Yes (Other)
  Sender: FDA-Public Use
  Company Number: 2022A244960

PATIENT
  Age: 49 Year
  Sex: Male

DRUGS (1)
  1. CALQUENCE [Suspect]
     Active Substance: ACALABRUTINIB
     Indication: Chronic lymphocytic leukaemia
     Route: 048
     Dates: start: 202203

REACTIONS (3)
  - Lymphocytosis [Recovering/Resolving]
  - Blood creatine abnormal [Recovering/Resolving]
  - Thrombocytopenia [Recovering/Resolving]
